FAERS Safety Report 23198738 (Version 1)
Quarter: 2023Q4

REPORT INFORMATION
  Report Type: Spontaneous
  Country: CA (occurrence: CA)
  Receive Date: 20231117
  Receipt Date: 20231117
  Transmission Date: 20240110
  Serious: Yes (Hospitalization, Other)
  Sender: FDA-Public Use
  Company Number: CA-PFIZER INC-202300367567

PATIENT
  Age: 59 Year
  Sex: Male
  Weight: 56 kg

DRUGS (13)
  1. OXALIPLATIN [Suspect]
     Active Substance: OXALIPLATIN
     Indication: Adenocarcinoma
     Dosage: 190 MG, 1 EVERY 3 WEEKS
     Route: 042
  2. CAPECITABINE [Suspect]
     Active Substance: CAPECITABINE
     Indication: Adenocarcinoma
     Dosage: 3000 MG, 1X/DAY
  3. CAPECITABINE [Suspect]
     Active Substance: CAPECITABINE
     Dosage: 1500 MG, 1X/DAY
     Route: 048
  4. TECENTRIQ [Suspect]
     Active Substance: ATEZOLIZUMAB
     Indication: Adenocarcinoma
     Dosage: 1200 MG, 1 EVERY 3 WEEKS
  5. URSODIOL [Suspect]
     Active Substance: URSODIOL
  6. ADENOSINE [Concomitant]
     Active Substance: ADENOSINE
  7. CELEBREX [Concomitant]
     Active Substance: CELECOXIB
  8. DEXAMETHASONE [Concomitant]
     Active Substance: DEXAMETHASONE
     Route: 065
  9. FOSAPREPITANT [Concomitant]
     Active Substance: FOSAPREPITANT
  10. OMEPRAZOLE [Concomitant]
     Active Substance: OMEPRAZOLE
  11. ONDANSETRON HYDROCHLORIDE [Concomitant]
     Active Substance: ONDANSETRON HYDROCHLORIDE
  12. OPTIRAY [Concomitant]
     Active Substance: IOVERSOL
  13. PALONOSETRON HYDROCHLORIDE [Concomitant]
     Active Substance: PALONOSETRON HYDROCHLORIDE

REACTIONS (2)
  - Jaundice [Recovered/Resolved]
  - Off label use [Unknown]
